FAERS Safety Report 4400565-X (Version None)
Quarter: 2004Q3

REPORT INFORMATION
  Report Type: 
  Country: None (occurrence: None)
  Receive Date: 20040719
  Receipt Date: 20040706
  Transmission Date: 20050211
  Serious: Yes (Congenital Anomaly, Other)
  Sender: FDA-Public Use
  Company Number: PHBS2004BR09075

PATIENT

DRUGS (1)
  1. CATAFLAM [Suspect]
     Route: 064

REACTIONS (2)
  - CONGENITAL HAND MALFORMATION [None]
  - DRUG EXPOSURE DURING PREGNANCY [None]
